FAERS Safety Report 25606560 (Version 2)
Quarter: 2025Q3

REPORT INFORMATION
  Report Type: Spontaneous
  Country: US (occurrence: US)
  Receive Date: 20250725
  Receipt Date: 20250825
  Transmission Date: 20251020
  Serious: No
  Sender: BIOMARIN
  Company Number: US-BIOMARINAP-US-2025-167464

PATIENT
  Age: 41 Year
  Sex: Female

DRUGS (1)
  1. PALYNZIQ [Suspect]
     Active Substance: PEGVALIASE-PQPZ
     Indication: Product used for unknown indication
     Dosage: 2.5 MILLIGRAM, QW
     Dates: start: 20250604

REACTIONS (4)
  - Arthralgia [Unknown]
  - Injection site reaction [Unknown]
  - Injection site rash [Unknown]
  - Injection site pain [Unknown]
